FAERS Safety Report 19659815 (Version 1)
Quarter: 2021Q3

REPORT INFORMATION
  Report Type: Spontaneous
  Country: IT (occurrence: IT)
  Receive Date: 20210805
  Receipt Date: 20210805
  Transmission Date: 20211014
  Serious: Yes (Hospitalization, Other)
  Sender: FDA-Public Use
  Company Number: IT-SA-2021SA257173

PATIENT
  Age: 36 Year
  Sex: Female

DRUGS (3)
  1. KESTINE [Concomitant]
     Active Substance: EBASTINE
     Dosage: 1 DF
     Route: 065
  2. DUPILUMAB [Suspect]
     Active Substance: DUPILUMAB
     Indication: DERMATITIS ATOPIC
     Dosage: 1 DF; FREQUENCY: CYCLICAL
     Route: 058
     Dates: start: 20210301, end: 20210614
  3. TAPAZOLE [Concomitant]
     Active Substance: METHIMAZOLE
     Dosage: 0.25 MG
     Route: 048

REACTIONS (4)
  - Off label use [Unknown]
  - Tongue biting [Recovered/Resolved]
  - Partial seizures [Recovered/Resolved]
  - Clonus [Recovered/Resolved]

NARRATIVE: CASE EVENT DATE: 20210301
